FAERS Safety Report 9234857 (Version 2)
Quarter: 2013Q2

REPORT INFORMATION
  Report Type: Spontaneous
  Country: US (occurrence: US)
  Receive Date: 20130416
  Receipt Date: 20130513
  Transmission Date: 20140414
  Serious: Yes (Other)
  Sender: FDA-Public Use
  Company Number: US-PFIZER INC-2013117730

PATIENT
  Age: 56 Year
  Sex: Female
  Weight: 78.46 kg

DRUGS (2)
  1. LIPITOR [Suspect]
     Dosage: UNK
     Route: 048
  2. NITROSTAT [Suspect]
     Indication: CHEST PAIN
     Dosage: UNK
     Route: 048

REACTIONS (1)
  - Cholelithiasis [Unknown]
